FAERS Safety Report 5506375-4 (Version None)
Quarter: 2007Q4

REPORT INFORMATION
  Report Type: 
  Country: None (occurrence: None)
  Receive Date: 20071105
  Receipt Date: 20071025
  Transmission Date: 20080405
  Serious: Yes (Hospitalization)
  Sender: FDA-Public Use
  Company Number: US-JNJFOC-20071007377

PATIENT
  Sex: Female
  Weight: 104.78 kg

DRUGS (10)
  1. DURAGESIC-100 [Suspect]
     Indication: SCOLIOSIS
     Route: 062
  2. FLU SHOT [Suspect]
     Indication: INFLUENZA IMMUNISATION
     Route: 030
  3. CYMBALTA [Suspect]
     Indication: DEPRESSION
     Route: 048
  4. CARDIZEM CD [Concomitant]
     Indication: BLOOD PRESSURE
     Route: 048
  5. XANAX [Concomitant]
     Indication: ANXIETY
     Route: 048
  6. MAXALT [Concomitant]
     Indication: MIGRAINE
     Route: 048
  7. KEPPRA [Concomitant]
     Indication: MIGRAINE
     Dosage: 2X 250MG AT NIGHT
     Route: 048
  8. AXERT [Concomitant]
     Indication: MIGRAINE
     Route: 048
  9. PROTONIX [Concomitant]
     Indication: GASTROOESOPHAGEAL REFLUX DISEASE
     Route: 048
  10. LISINOPRIL [Concomitant]
     Indication: HYPERTENSION
     Dosage: AT NIGHT
     Route: 048

REACTIONS (12)
  - BREAKTHROUGH PAIN [None]
  - FATIGUE [None]
  - GASTROINTESTINAL DISORDER [None]
  - GLYCOSYLATED HAEMOGLOBIN INCREASED [None]
  - INFLAMMATION [None]
  - INSOMNIA [None]
  - MENORRHAGIA [None]
  - PNEUMONIA [None]
  - PULMONARY OEDEMA [None]
  - TREMOR [None]
  - WEIGHT DECREASED [None]
  - WRONG TECHNIQUE IN DRUG USAGE PROCESS [None]
